FAERS Safety Report 11773215 (Version 1)
Quarter: 2015Q4

REPORT INFORMATION
  Report Type: Spontaneous
  Country: YE (occurrence: YE)
  Receive Date: 20151124
  Receipt Date: 20151124
  Transmission Date: 20160304
  Serious: Yes (Other)
  Sender: FDA-Public Use
  Company Number: YE-ROXANE LABORATORIES, INC.-2015-RO-01996RO

PATIENT
  Age: 50 Year
  Sex: Female

DRUGS (2)
  1. VITAMIN D3 [Concomitant]
     Active Substance: CHOLECALCIFEROL
     Indication: VITAMIN D DEFICIENCY
     Route: 065
  2. CALCIUM ACETATE. [Suspect]
     Active Substance: CALCIUM ACETATE
     Indication: VITAMIN D DEFICIENCY
     Dosage: 1000 MG
     Route: 065

REACTIONS (1)
  - Abdominal pain upper [Unknown]
